FAERS Safety Report 12942671 (Version 4)
Quarter: 2018Q1

REPORT INFORMATION
  Report Type: Report from Study
  Country: CO (occurrence: CO)
  Receive Date: 20161114
  Receipt Date: 20180125
  Transmission Date: 20180508
  Serious: Yes (Hospitalization, Other)
  Sender: FDA-Public Use
  Company Number: CO-BRISTOL-MYERS SQUIBB COMPANY-BMS-2016-094350

PATIENT
  Age: 72 Year
  Sex: Female

DRUGS (2)
  1. BELATACEPT [Suspect]
     Active Substance: BELATACEPT
     Indication: PRODUCT USED FOR UNKNOWN INDICATION
     Dosage: 435 MG, QMO
     Route: 042
     Dates: start: 20160313
  2. BELATACEPT [Suspect]
     Active Substance: BELATACEPT
     Indication: RENAL TRANSPLANT
     Dosage: 250 MG, QMO
     Route: 065
     Dates: start: 2013

REACTIONS (3)
  - Renal infarct [Recovering/Resolving]
  - Kidney transplant rejection [Recovered/Resolved]
  - Diarrhoea [Recovering/Resolving]

NARRATIVE: CASE EVENT DATE: 201610
